FAERS Safety Report 10111367 (Version 1)
Quarter: 2014Q2

REPORT INFORMATION
  Report Type: Spontaneous
  Country: US (occurrence: US)
  Receive Date: 20140425
  Receipt Date: 20140425
  Transmission Date: 20141212
  Serious: No
  Sender: FDA-Public Use
  Company Number: US-TEVA-477906USA

PATIENT
  Sex: Male

DRUGS (2)
  1. TREANDA [Suspect]
     Indication: NON-HODGKIN^S LYMPHOMA
     Dosage: 6 CYCLES
  2. RITUXAN [Concomitant]

REACTIONS (2)
  - Vein discolouration [Not Recovered/Not Resolved]
  - Pain [Not Recovered/Not Resolved]
